FAERS Safety Report 15496523 (Version 1)
Quarter: 2018Q4

REPORT INFORMATION
  Report Type: Spontaneous
  Country: US (occurrence: US)
  Receive Date: 20181013
  Receipt Date: 20181013
  Transmission Date: 20190205
  Serious: No
  Sender: FDA-Public Use
  Company Number: US-TEVA-2018-US-962024

PATIENT
  Age: 85 Year
  Sex: Male

DRUGS (2)
  1. HYDROCODONE MALLINCKRODT [Suspect]
     Active Substance: HYDROCODONE
     Indication: PAIN
     Route: 065
  2. HYDROCORTISONE. [Suspect]
     Active Substance: HYDROCORTISONE
     Indication: TRANSIENT ACANTHOLYTIC DERMATOSIS
     Route: 065
     Dates: start: 20180926

REACTIONS (3)
  - Burning sensation [Unknown]
  - Pruritus [Unknown]
  - Flushing [Unknown]

NARRATIVE: CASE EVENT DATE: 20181003
